FAERS Safety Report 25578115 (Version 1)
Quarter: 2025Q3

REPORT INFORMATION
  Report Type: Report from Study
  Country: BR (occurrence: BR)
  Receive Date: 20250718
  Receipt Date: 20250718
  Transmission Date: 20251020
  Serious: Yes (Hospitalization)
  Sender: BIOGEN
  Company Number: BR-BIOGEN-2025BI01317417

PATIENT
  Sex: Female

DRUGS (4)
  1. TYSABRI [Suspect]
     Active Substance: NATALIZUMAB
     Indication: Multiple sclerosis
     Route: 050
  2. FLUOXETINE [Concomitant]
     Active Substance: FLUOXETINE HYDROCHLORIDE
     Indication: Product used for unknown indication
     Route: 050
  3. VITAMIN B12 [Concomitant]
     Active Substance: CYANOCOBALAMIN
     Indication: Product used for unknown indication
     Route: 050
  4. VITAMIN D [Concomitant]
     Active Substance: VITAMIN D NOS
     Indication: Product used for unknown indication
     Route: 050

REACTIONS (8)
  - Memory impairment [Unknown]
  - Dysstasia [Unknown]
  - Ataxia [Unknown]
  - Eye movement disorder [Unknown]
  - Balance disorder [Unknown]
  - Gait disturbance [Unknown]
  - Restlessness [Unknown]
  - Nystagmus [Unknown]
